FAERS Safety Report 17729772 (Version 1)
Quarter: 2020Q2

REPORT INFORMATION
  Report Type: Spontaneous
  Country: US (occurrence: US)
  Receive Date: 20200430
  Receipt Date: 20200430
  Transmission Date: 20200714
  Serious: No
  Sender: FDA-Public Use
  Company Number: NVSC2020US116277

PATIENT
  Sex: Female

DRUGS (1)
  1. XIIDRA [Suspect]
     Active Substance: LIFITEGRAST
     Indication: PRODUCT USED FOR UNKNOWN INDICATION
     Dosage: UNK UNK, QOD
     Route: 065

REACTIONS (6)
  - Eye discharge [Unknown]
  - Vision blurred [Unknown]
  - Eye swelling [Unknown]
  - Eye pruritus [Unknown]
  - Eye irritation [Unknown]
  - Hypersensitivity [Unknown]
